FAERS Safety Report 14400709 (Version 4)
Quarter: 2018Q1

REPORT INFORMATION
  Report Type: Report from Study
  Country: US (occurrence: US)
  Receive Date: 20180117
  Receipt Date: 20180313
  Transmission Date: 20180509
  Serious: Yes (Hospitalization, Other)
  Sender: FDA-Public Use
  Company Number: US-GILEAD-2018-0316117

PATIENT
  Age: 90 Year
  Sex: Female
  Weight: 62.59 kg

DRUGS (8)
  1. ADCIRCA [Concomitant]
     Active Substance: TADALAFIL
  2. SPIRONOLACTONE. [Concomitant]
     Active Substance: SPIRONOLACTONE
  3. AMBRISENTAN [Suspect]
     Active Substance: AMBRISENTAN
     Indication: PRODUCT USED FOR UNKNOWN INDICATION
     Dosage: 10 MG, QD
     Route: 048
     Dates: start: 20120705
  4. AMBRISENTAN [Suspect]
     Active Substance: AMBRISENTAN
     Dosage: 1/2 TABLET
     Route: 065
  5. DESOXYN [Concomitant]
     Active Substance: METHAMPHETAMINE HYDROCHLORIDE
  6. TADALAFIL [Concomitant]
     Active Substance: TADALAFIL
  7. POTASSIUM [Concomitant]
     Active Substance: POTASSIUM
  8. SIMVASTATIN. [Concomitant]
     Active Substance: SIMVASTATIN

REACTIONS (8)
  - Wrong technique in product usage process [Unknown]
  - Oedema peripheral [Unknown]
  - Fluid overload [Unknown]
  - Localised oedema [Unknown]
  - Intentional product use issue [Unknown]
  - Intra-abdominal fluid collection [Unknown]
  - Urinary tract infection [Unknown]
  - Cardiac failure [Recovered/Resolved]

NARRATIVE: CASE EVENT DATE: 20171226
